FAERS Safety Report 7319530-8 (Version None)
Quarter: 2011Q1

REPORT INFORMATION
  Report Type: 
  Country: None (occurrence: None)
  Receive Date: 20110228
  Receipt Date: 20100504
  Transmission Date: 20110831
  Serious: No
  Sender: FDA-Public Use
  Company Number: A0857924A

PATIENT
  Sex: Male

DRUGS (3)
  1. ZYRTEC [Concomitant]
  2. LAMICTAL [Suspect]
     Dosage: 150MG PER DAY
     Route: 048
     Dates: start: 20071201
  3. NASONEX [Concomitant]

REACTIONS (1)
  - ALOPECIA [None]
